FAERS Safety Report 7979295-3 (Version None)
Quarter: 2011Q4

REPORT INFORMATION
  Report Type: 
  Country: None (occurrence: None)
  Receive Date: 20111214
  Receipt Date: 20111209
  Transmission Date: 20120403
  Serious: Yes (Hospitalization)
  Sender: FDA-Public Use
  Company Number: CN-BAYER-2011-115998

PATIENT
  Age: 58 Year
  Sex: Female

DRUGS (1)
  1. ASPIRIN [Suspect]
     Dosage: 200 MG, ONCE
     Dates: start: 20110411

REACTIONS (4)
  - CEREBRAL MICROHAEMORRHAGE [None]
  - CONFUSIONAL STATE [None]
  - MEMORY IMPAIRMENT [None]
  - UNRESPONSIVE TO STIMULI [None]
